FAERS Safety Report 7001429-8 (Version None)
Quarter: 2010Q3

REPORT INFORMATION
  Report Type: 
  Country: None (occurrence: None)
  Receive Date: 20100920
  Receipt Date: 20100319
  Transmission Date: 20110219
  Serious: No
  Sender: FDA-Public Use
  Company Number: US-ASTRAZENECA-2010SE12389

PATIENT
  Age: 51 Year
  Sex: Male

DRUGS (7)
  1. SEROQUEL [Suspect]
     Indication: SCHIZOAFFECTIVE DISORDER
     Route: 048
     Dates: start: 20030101, end: 20060101
  2. SEROQUEL [Suspect]
     Route: 048
     Dates: start: 20060101
  3. GEODON [Concomitant]
  4. GLIBORNURIDE [Concomitant]
  5. METFORMIN [Concomitant]
  6. CLONAZEPAM [Concomitant]
  7. BENADRYL [Concomitant]

REACTIONS (4)
  - HEADACHE [None]
  - OVERDOSE [None]
  - THERAPEUTIC RESPONSE UNEXPECTED [None]
  - VISION BLURRED [None]
